FAERS Safety Report 21383482 (Version 2)
Quarter: 2022Q4

REPORT INFORMATION
  Report Type: Spontaneous
  Country: JP (occurrence: JP)
  Receive Date: 20220927
  Receipt Date: 20221020
  Transmission Date: 20230112
  Serious: Yes (Other)
  Sender: FDA-Public Use
  Company Number: JP-NOVARTISPH-NVSJ2022JP098179

PATIENT
  Sex: Male

DRUGS (2)
  1. COSENTYX [Suspect]
     Active Substance: SECUKINUMAB
     Indication: Psoriasis
     Dosage: 300 MG,INCIDENCE UNKNOWN
     Route: 058
     Dates: start: 20200401, end: 202205
  2. COSENTYX [Suspect]
     Active Substance: SECUKINUMAB
     Dosage: 300 MG,INCIDENCE UNKNOWN
     Route: 058
     Dates: end: 20220701

REACTIONS (2)
  - Interstitial lung disease [Unknown]
  - Rash [Unknown]

NARRATIVE: CASE EVENT DATE: 20220819
